FAERS Safety Report 7826447-9 (Version None)
Quarter: 2011Q4

REPORT INFORMATION
  Report Type: 
  Country: None (occurrence: None)
  Receive Date: 20111020
  Receipt Date: 20111004
  Transmission Date: 20120403
  Serious: Yes (Hospitalization)
  Sender: FDA-Public Use
  Company Number: CS-NOVOPROD-335740

PATIENT

DRUGS (8)
  1. RISPERIDONE [Concomitant]
     Indication: EMOTIONAL DISORDER OF CHILDHOOD
  2. NORDITROPIN [Suspect]
     Indication: GROWTH HORMONE DEFICIENCY
     Dosage: 0.77 MG, QD (EACH EVENING BEFORE BEDTIME)
     Route: 058
     Dates: start: 20110618
  3. CLONAZEPAM [Concomitant]
     Indication: ABNORMAL BEHAVIOUR
  4. CLONAZEPAM [Concomitant]
     Indication: EMOTIONAL DISORDER OF CHILDHOOD
  5. MELIPRAMIN [Concomitant]
     Dosage: 1 G, UNK
     Route: 048
     Dates: start: 20101101
  6. RISPERIDONE [Concomitant]
     Indication: MENTAL DISORDER
     Dosage: 3 DRPOS IN THE MORNING, 4 DROPS IN THE EVENING
     Route: 048
     Dates: start: 20110401
  7. CLONAZEPAM [Concomitant]
     Indication: MENTAL DISORDER
     Dosage: 2 MG, UNK (3X1/4 TABLET)
     Route: 048
     Dates: start: 20110101
  8. RISPERIDONE [Concomitant]
     Indication: ABNORMAL BEHAVIOUR

REACTIONS (2)
  - BLOOD GLUCOSE INCREASED [None]
  - EATING DISORDER [None]
